FAERS Safety Report 8764968 (Version 2)
Quarter: 2012Q4

REPORT INFORMATION
  Report Type: 
  Country: CO (occurrence: CO)
  Receive Date: 20120902
  Receipt Date: 20121231
  Transmission Date: 20130627
  Serious: Yes (Hospitalization, Other)
  Sender: FDA-Public Use
  Company Number: CO-AMGEN-COLSP2012054596

PATIENT
  Age: 62 Year
  Sex: Female

DRUGS (14)
  1. ENBREL [Suspect]
     Indication: RHEUMATOID ARTHRITIS
     Dosage: 50 mg, weekly
     Route: 058
     Dates: start: 201111, end: 201206
  2. ACETAMINOPHEN W/CODEINE [Concomitant]
     Indication: RHEUMATOID ARTHRITIS
     Dosage: at night
     Route: 048
  3. OMEPRAZOL                          /00661201/ [Concomitant]
     Dosage: one on morning and one at night
     Route: 048
  4. LOVASTATIN [Concomitant]
     Dosage: at night
     Route: 048
  5. ENALAPRIL [Concomitant]
     Dosage: UNK
     Route: 065
  6. PREDNISOLONE [Concomitant]
     Dosage: one tablet and a half, 1x/day
     Route: 065
  7. FOLIC ACID [Concomitant]
     Dosage: UNK
     Route: 065
  8. METHOTREXATE [Concomitant]
     Indication: RHEUMATOID ARTHRITIS
     Dosage: 3 on Saturday and 3 on Sunday
     Route: 065
  9. METHOTREXATE [Concomitant]
     Dosage: 8 tablet per week
     Route: 065
  10. SULFASALAZINE [Concomitant]
     Dosage: one in the morning and one at night, 1x/day
     Route: 065
     Dates: start: 201206
  11. SULFASALAZINE [Concomitant]
     Dosage: one in the morning and one at night, 1x/day
     Route: 065
     Dates: start: 201206
  12. COUMADINE [Concomitant]
     Dosage: half a tablet every other day
     Route: 065
  13. ARAVA [Concomitant]
     Dosage: at night
     Route: 065
  14. CODEINE [Concomitant]
     Dosage: UNK

REACTIONS (10)
  - Oedema peripheral [Recovering/Resolving]
  - Thrombosis [Recovered/Resolved]
  - Coagulopathy [Recovered/Resolved]
  - Immune system disorder [Recovered/Resolved]
  - Dizziness [Unknown]
  - Headache [Unknown]
  - Urinary tract infection [Recovered/Resolved]
  - Influenza [Unknown]
  - Bronchitis [Recovered/Resolved]
  - Gastroenteritis [Recovered/Resolved]
